FAERS Safety Report 25615359 (Version 2)
Quarter: 2025Q3

REPORT INFORMATION
  Report Type: Report from Study
  Country: US (occurrence: US)
  Receive Date: 20250729
  Receipt Date: 20250821
  Transmission Date: 20251020
  Serious: Yes (Hospitalization, Other)
  Sender: STEMLINE THERAPEUTICS
  Company Number: US-STEMLINE THERAPEUTICS B.V.-2025-STML-US001991

PATIENT

DRUGS (1)
  1. ORSERDU [Suspect]
     Active Substance: ELACESTRANT
     Indication: Breast cancer female
     Dosage: 345 MG, DAILY
     Route: 048
     Dates: start: 20250531

REACTIONS (16)
  - Asphyxia [Unknown]
  - Pneumonia [Unknown]
  - Metastases to lung [Unknown]
  - Blood creatinine decreased [Unknown]
  - Protein total decreased [Unknown]
  - Asthma [Unknown]
  - Discouragement [Unknown]
  - Malaise [Unknown]
  - Chest pain [Unknown]
  - White blood cell count decreased [Unknown]
  - Bone pain [Unknown]
  - Fatigue [Not Recovered/Not Resolved]
  - Dyspnoea [Unknown]
  - Cough [Not Recovered/Not Resolved]
  - Constipation [Unknown]
  - Headache [Unknown]
